FAERS Safety Report 10023543 (Version 3)
Quarter: 2014Q1

REPORT INFORMATION
  Report Type: Spontaneous
  Country: NZ (occurrence: NZ)
  Receive Date: 20140320
  Receipt Date: 20140327
  Transmission Date: 20141002
  Serious: Yes (Hospitalization)
  Sender: FDA-Public Use
  Company Number: NZ-ROCHE-1360498

PATIENT
  Sex: Female

DRUGS (5)
  1. HERCEPTIN [Suspect]
     Indication: BREAST CANCER
     Route: 042
     Dates: start: 201310
  2. OMEPRAZOLE [Concomitant]
  3. PANADEINE [Concomitant]
  4. TRAMADOL [Concomitant]
  5. AMITRIPTYLINE [Concomitant]

REACTIONS (10)
  - Diarrhoea [Not Recovered/Not Resolved]
  - Fatigue [Not Recovered/Not Resolved]
  - Oesophageal pain [Not Recovered/Not Resolved]
  - Sensation of foreign body [Not Recovered/Not Resolved]
  - Malaise [Unknown]
  - Mastectomy [Recovered/Resolved]
  - Breast reconstruction [Recovered/Resolved]
  - Alopecia [Recovered/Resolved]
  - Abdominal discomfort [Unknown]
  - Abdominal discomfort [Unknown]
